FAERS Safety Report 4886898-1 (Version None)
Quarter: 2006Q1

REPORT INFORMATION
  Report Type: 
  Country: None (occurrence: None)
  Receive Date: 20060119
  Receipt Date: 20060110
  Transmission Date: 20060701
  Serious: Yes (Hospitalization)
  Sender: FDA-Public Use
  Company Number: FR-2006-000540

PATIENT
  Age: 78 Year
  Sex: Male

DRUGS (9)
  1. SOTALOL HCL [Suspect]
     Dosage: 160 MG/D, 1X/DAY, ORAL
     Route: 048
  2. DITROPAN /USA/ (OXYBUTYNIN) [Suspect]
     Dosage: 1.5 DOSES/DAY, ORAL
     Route: 048
  3. CORVASAL (MOLSIDOMINE) [Concomitant]
  4. EFFEXOR [Concomitant]
  5. NEXIUM [Concomitant]
  6. TRANXENE [Concomitant]
  7. HYDROCORTISONE [Concomitant]
  8. PREVISCAN (FLUINDIONE) [Concomitant]
  9. KARDEGIC /FRA/ (ACETYLSALICYLATE LYSINE) [Concomitant]

REACTIONS (3)
  - ANOREXIA [None]
  - ASTHENIA [None]
  - MALAISE [None]
